FAERS Safety Report 6351615-5 (Version None)
Quarter: 2009Q3

REPORT INFORMATION
  Report Type: 
  Country: None (occurrence: None)
  Receive Date: 20090912
  Receipt Date: 20090622
  Transmission Date: 20100115
  Serious: No
  Sender: FDA-Public Use
  Company Number: US-ABBOTT-07P-163-0419532-00

PATIENT
  Sex: Female
  Weight: 59.02 kg

DRUGS (10)
  1. HUMIRA [Suspect]
     Indication: CROHN'S DISEASE
     Dosage: PEN
     Route: 058
     Dates: start: 20070912
  2. HUMIRA [Suspect]
     Route: 058
     Dates: start: 20070201, end: 20070201
  3. HUMIRA [Suspect]
     Route: 058
     Dates: start: 20070201, end: 20070301
  4. HUMIRA [Suspect]
     Route: 058
     Dates: start: 20070301, end: 20070912
  5. COLESEVELAM HYDROCHLORIDE [Concomitant]
     Indication: CROHN'S DISEASE
     Route: 048
  6. MESALAZINE [Concomitant]
     Indication: CROHN'S DISEASE
     Route: 048
  7. PHENYTOIN [Concomitant]
     Indication: CONVULSION
     Route: 048
  8. POTASSIUM CHLORIDE [Concomitant]
     Indication: MINERAL SUPPLEMENTATION
     Route: 048
  9. HYOSCYAMIN ER [Concomitant]
     Indication: ANTACID THERAPY
     Route: 048
  10. ESCITALOPRAM OXALATE [Concomitant]
     Indication: DEPRESSION
     Route: 048

REACTIONS (2)
  - DRUG DELIVERY SYSTEM MALFUNCTION [None]
  - INCORRECT DOSE ADMINISTERED [None]
